FAERS Safety Report 10024202 (Version 1)
Quarter: 2014Q1

REPORT INFORMATION
  Report Type: Spontaneous
  Country: US (occurrence: US)
  Receive Date: 20140320
  Receipt Date: 20140320
  Transmission Date: 20141002
  Serious: No
  Sender: FDA-Public Use
  Company Number: US-PFIZER INC-2014074830

PATIENT
  Age: 26 Year
  Sex: Male

DRUGS (1)
  1. VIAGRA [Suspect]
     Indication: SUBSTANCE USE
     Dosage: UNK, TAKEN 5 TIMES IN PILL FORM OVER A 4-5 MONTH TIME PERIOD

REACTIONS (4)
  - Feeling hot [Unknown]
  - Hyperhidrosis [Unknown]
  - Fatigue [Unknown]
  - Intentional drug misuse [Unknown]
